FAERS Safety Report 14801352 (Version 1)
Quarter: 2018Q2

REPORT INFORMATION
  Report Type: Report from Study
  Country: None (occurrence: US)
  Receive Date: 20180424
  Receipt Date: 20180424
  Transmission Date: 20180711
  Serious: Yes (Other)
  Sender: FDA-Public Use
  Company Number: US-BAUSCH-BL-2018-011862

PATIENT
  Sex: Female

DRUGS (1)
  1. UCERIS [Suspect]
     Active Substance: BUDESONIDE
     Indication: PRODUCT USED FOR UNKNOWN INDICATION
     Route: 065

REACTIONS (12)
  - Musculoskeletal discomfort [Unknown]
  - Intervertebral disc protrusion [Unknown]
  - Anxiety [Unknown]
  - Cognitive disorder [Unknown]
  - Skin disorder [Unknown]
  - Gastrointestinal bacterial overgrowth [Unknown]
  - Colitis microscopic [Unknown]
  - Diarrhoea [Unknown]
  - Flatulence [Unknown]
  - Haemorrhoids [Unknown]
  - Frequent bowel movements [Unknown]
  - Breast cancer [Unknown]

NARRATIVE: CASE EVENT DATE: 2007
